FAERS Safety Report 7241306-0 (Version None)
Quarter: 2011Q1

REPORT INFORMATION
  Report Type: 
  Country: None (occurrence: None)
  Receive Date: 20110124
  Receipt Date: 20110120
  Transmission Date: 20110831
  Serious: Yes (Other)
  Sender: FDA-Public Use
  Company Number: D0070038A

PATIENT
  Sex: Male

DRUGS (1)
  1. DUODART [Suspect]
     Route: 048

REACTIONS (2)
  - HALLUCINATION [None]
  - DIZZINESS [None]
